FAERS Safety Report 21638698 (Version 1)
Quarter: 2022Q4

REPORT INFORMATION
  Report Type: Spontaneous
  Country: US (occurrence: US)
  Receive Date: 20221124
  Receipt Date: 20221124
  Transmission Date: 20230112
  Serious: No
  Sender: FDA-Public Use
  Company Number: US-BIOVITRUM-2022US13500

PATIENT
  Sex: Male
  Weight: 8 kg

DRUGS (8)
  1. SYNAGIS [Suspect]
     Active Substance: PALIVIZUMAB
     Indication: Ventricular septal defect
  2. SYNAGIS [Suspect]
     Active Substance: PALIVIZUMAB
     Indication: Pulmonary valve stenosis congenital
  3. SYNAGIS [Suspect]
     Active Substance: PALIVIZUMAB
     Indication: Premature baby
  4. SYNAGIS [Suspect]
     Active Substance: PALIVIZUMAB
     Indication: Respiratory syncytial virus immunisation
  5. ENALAPRIL MALEATE [Concomitant]
     Active Substance: ENALAPRIL MALEATE
     Dosage: 5 MILLIGRAM TABLET
  6. VITAMIN D3 [Concomitant]
     Active Substance: CHOLECALCIFEROL
     Dosage: 10 MCG TABLET
  7. ASPIRIN [Concomitant]
     Active Substance: ASPIRIN
     Dosage: 81 MILLIGRAM TAB CHEW
  8. EPINEPHRINE [Concomitant]
     Active Substance: EPINEPHRINE

REACTIONS (2)
  - Nasopharyngitis [Unknown]
  - Pyrexia [Unknown]
